FAERS Safety Report 10309524 (Version 2)
Quarter: 2014Q4

REPORT INFORMATION
  Report Type: Spontaneous
  Country: FR (occurrence: FR)
  Receive Date: 20140717
  Receipt Date: 20141015
  Transmission Date: 20150528
  Serious: Yes (Other)
  Sender: FDA-Public Use
  Company Number: FR-AMGEN INC.-FRASP2014053327

PATIENT
  Age: 53 Year
  Sex: Female
  Weight: 84 kg

DRUGS (5)
  1. OESTRODOSE [Concomitant]
     Active Substance: ESTRADIOL
     Indication: MENOPAUSE
     Dosage: UNK
     Route: 062
  2. DETENSIEL                          /00802601/ [Concomitant]
     Indication: HYPERTENSION
     Dosage: 10 MG, UNK
  3. ENBREL [Suspect]
     Active Substance: ETANERCEPT
     Indication: ANKYLOSING SPONDYLITIS
     Dosage: 50 MG, WEEKLY
     Route: 065
     Dates: start: 20140320, end: 20140708
  4. TRAMADOL [Concomitant]
     Active Substance: TRAMADOL
     Dosage: 50 MG, UNK
  5. DUPHASTON [Concomitant]
     Active Substance: DYDROGESTERONE
     Indication: MENOPAUSE
     Dosage: 10 UNK, UNK

REACTIONS (11)
  - Pain in extremity [Not Recovered/Not Resolved]
  - Peripheral swelling [Not Recovered/Not Resolved]
  - Feeling hot [Not Recovered/Not Resolved]
  - Injection site pruritus [Not Recovered/Not Resolved]
  - Polyneuropathy [Not Recovered/Not Resolved]
  - Formication [Not Recovered/Not Resolved]
  - Sensory loss [Not Recovered/Not Resolved]
  - Injection site hypersensitivity [Not Recovered/Not Resolved]
  - Paraesthesia [Not Recovered/Not Resolved]
  - Injection site erythema [Not Recovered/Not Resolved]
  - Injection site pain [Unknown]

NARRATIVE: CASE EVENT DATE: 2014
